FAERS Safety Report 5221577-2 (Version None)
Quarter: 2007Q1

REPORT INFORMATION
  Report Type: 
  Country: None (occurrence: None)
  Receive Date: 20070127
  Receipt Date: 20070118
  Transmission Date: 20070707
  Serious: Yes (Death)
  Sender: FDA-Public Use
  Company Number: SE-ABBOTT-06P-150-0353817-00

PATIENT
  Age: 33 Year
  Sex: Female

DRUGS (3)
  1. REDUCTIL 10MG [Suspect]
     Indication: OBESITY
     Route: 048
     Dates: start: 20051213
  2. BETAMETHASONE SODIUM PHOSPHATE [Suspect]
     Indication: IRITIS
     Route: 048
  3. RANITIDINE HYDROCHLORIDE [Suspect]
     Indication: GASTROENTERITIS
     Route: 048
     Dates: start: 20051107

REACTIONS (4)
  - ADRENOCORTICAL INSUFFICIENCY ACUTE [None]
  - GASTROENTERITIS [None]
  - MEMORY IMPAIRMENT [None]
  - SUDDEN DEATH [None]
